FAERS Safety Report 6378451-8 (Version None)
Quarter: 2009Q3

REPORT INFORMATION
  Report Type: 
  Country: None (occurrence: None)
  Receive Date: 20090927
  Receipt Date: 20090919
  Transmission Date: 20100115
  Serious: Yes (Hospitalization)
  Sender: FDA-Public Use
  Company Number: IN-ELI_LILLY_AND_COMPANY-IN200909004845

PATIENT
  Age: 35 Year
  Sex: Male

DRUGS (3)
  1. HUMULIN 70/30 [Suspect]
     Indication: ASTHENIA
     Dosage: 40 IU, UNKNOWN
     Dates: start: 20090918, end: 20090901
  2. HUMULIN 70/30 [Suspect]
     Dosage: 90 IU, UNKNOWN
     Dates: start: 20090901, end: 20090901
  3. HUMULIN 70/30 [Suspect]
     Dosage: UNK, UNK
     Dates: start: 20090901

REACTIONS (3)
  - BLOOD GLUCOSE ABNORMAL [None]
  - DRUG INEFFECTIVE [None]
  - OFF LABEL USE [None]
